FAERS Safety Report 9050656 (Version 1)
Quarter: 2013Q1

REPORT INFORMATION
  Report Type: Spontaneous
  Country: US (occurrence: US)
  Receive Date: 20130205
  Receipt Date: 20130205
  Transmission Date: 20140127
  Serious: Yes (Hospitalization)
  Sender: FDA-Public Use
  Company Number: US-009507513-1301USA013822

PATIENT
  Age: 67 Year
  Sex: Female

DRUGS (3)
  1. SIMVASTATIN TABLETS, USP [Suspect]
     Dosage: 10 MG, HS
     Route: 048
  2. DOCETAXEL [Interacting]
     Dosage: 75 MG/M2, Q3W
     Route: 042
  3. CYCLOPHOSPHAMIDE [Concomitant]

REACTIONS (2)
  - Atrial fibrillation [Recovered/Resolved]
  - Drug interaction [Unknown]
